FAERS Safety Report 21651347 (Version 3)
Quarter: 2022Q4

REPORT INFORMATION
  Report Type: Report from Study
  Country: US (occurrence: FR)
  Receive Date: 20221128
  Receipt Date: 20221222
  Transmission Date: 20230112
  Serious: Yes (Hospitalization)
  Sender: FDA-Public Use
  Company Number: US-PFIZER INC-PV202200107041

PATIENT
  Age: 7 Year
  Sex: Female
  Weight: 17.2 kg

DRUGS (3)
  1. LORLATINIB [Suspect]
     Active Substance: LORLATINIB
     Indication: Neuroblastoma
     Dosage: 115 MG/M2, 1X/DAY
     Route: 048
     Dates: start: 20220711
  2. TOPOTECAN [Suspect]
     Active Substance: TOPOTECAN HYDROCHLORIDE
     Indication: Neuroblastoma
     Dosage: 0.75 MG/M2, CYCLIC (ONCE DAILY, DAY 1-5)
     Route: 042
     Dates: start: 20220711
  3. CYCLOPHOSPHAMIDE [Suspect]
     Active Substance: CYCLOPHOSPHAMIDE
     Indication: Neuroblastoma
     Dosage: 250 MG/M2, CYCLIC (ONCE DAILY, DAY 1-5)
     Route: 042
     Dates: start: 20220711

REACTIONS (1)
  - Febrile neutropenia [Recovered/Resolved]

NARRATIVE: CASE EVENT DATE: 20221118
